FAERS Safety Report 7130724-7 (Version None)
Quarter: 2010Q4

REPORT INFORMATION
  Report Type: 
  Country: None (occurrence: None)
  Receive Date: 20101029
  Receipt Date: 20100823
  Transmission Date: 20110411
  Serious: Yes (Other)
  Sender: FDA-Public Use
  Company Number: NL-003491

PATIENT
  Sex: Male
  Weight: 87 kg

DRUGS (13)
  1. FIRMAGON [Suspect]
     Indication: PROSTATE CANCER
     Dosage: (240 MG 1X SUBCUTANEOUS), (80 MG 1X/MONTH SUBCUTANEOUS)
     Route: 058
     Dates: start: 20091207, end: 20091207
  2. FIRMAGON [Suspect]
     Indication: PROSTATE CANCER
     Dosage: (240 MG 1X SUBCUTANEOUS), (80 MG 1X/MONTH SUBCUTANEOUS)
     Route: 058
     Dates: start: 20100104, end: 20100525
  3. LOSARTAN [Concomitant]
  4. DILTIAZEM [Concomitant]
  5. FENPROCOUMON RATIOPHARM [Concomitant]
  6. ISOSORBIDE DINITRATE [Concomitant]
  7. METFORMIN HCL [Concomitant]
  8. METOPROLOL [Concomitant]
  9. NITROGLYCERIN [Concomitant]
  10. PANTOPRAZOLE [Concomitant]
  11. SIMVASTATIN [Concomitant]
  12. FINASTERIDE [Concomitant]
  13. ALFUZOSIN [Concomitant]

REACTIONS (1)
  - NON-HODGKIN'S LYMPHOMA [None]
